FAERS Safety Report 9839370 (Version 2)
Quarter: 2014Q1

REPORT INFORMATION
  Report Type: Report from Study
  Country: US (occurrence: US)
  Receive Date: 20140123
  Receipt Date: 20140204
  Transmission Date: 20141002
  Serious: Yes (Death)
  Sender: FDA-Public Use
  Company Number: US-ROCHE-1338432

PATIENT
  Age: 66 Year
  Sex: Female

DRUGS (5)
  1. ACTEMRA [Suspect]
     Indication: PRODUCT USED FOR UNKNOWN INDICATION
     Route: 042
     Dates: start: 20120412, end: 20120918
  2. CELEBREX [Suspect]
     Indication: PRODUCT USED FOR UNKNOWN INDICATION
     Route: 065
  3. LANSOPRAZOLE [Concomitant]
     Route: 065
  4. LOSARTAN [Concomitant]
     Route: 065
  5. LORTAB [Concomitant]

REACTIONS (1)
  - Inflammatory carcinoma of the breast [Fatal]
